FAERS Safety Report 7468962-6 (Version None)
Quarter: 2011Q2

REPORT INFORMATION
  Report Type: 
  Country: None (occurrence: None)
  Receive Date: 20110429
  Receipt Date: 20110414
  Transmission Date: 20111010
  Serious: No
  Sender: FDA-Public Use
  Company Number: B0712901A

PATIENT
  Age: 62 Year
  Sex: Female

DRUGS (2)
  1. STEROID [Concomitant]
  2. LAMOTRIGINE [Suspect]
     Indication: PARTIAL SEIZURES WITH SECONDARY GENERALISATION

REACTIONS (8)
  - LOWER RESPIRATORY TRACT INFECTION [None]
  - EPSTEIN-BARR VIRUS TEST POSITIVE [None]
  - DRUG RESISTANCE [None]
  - ORAL HAIRY LEUKOPLAKIA [None]
  - ALANINE AMINOTRANSFERASE INCREASED [None]
  - COMBINED IMMUNODEFICIENCY [None]
  - PRODUCTIVE COUGH [None]
  - NO THERAPEUTIC RESPONSE [None]
